FAERS Safety Report 10090504 (Version 1)
Quarter: 2014Q2

REPORT INFORMATION
  Report Type: Spontaneous
  Country: JP (occurrence: JP)
  Receive Date: 20140421
  Receipt Date: 20140421
  Transmission Date: 20141212
  Serious: Yes (Hospitalization, Other)
  Sender: FDA-Public Use
  Company Number: JP-ABBVIE-14P-087-1225790-00

PATIENT
  Age: 61 Year
  Sex: Female

DRUGS (4)
  1. HUMIRA [Suspect]
     Indication: PSORIATIC ARTHROPATHY
     Route: 058
     Dates: start: 2012
  2. HUMIRA [Suspect]
     Route: 058
  3. RHEUMATREX [Suspect]
     Indication: PSORIATIC ARTHROPATHY
     Dates: start: 2008
  4. STEROID [Suspect]
     Indication: PSORIATIC ARTHROPATHY
     Dates: start: 2012

REACTIONS (2)
  - Osteonecrosis [Recovering/Resolving]
  - Interstitial lung disease [Recovered/Resolved]
